FAERS Safety Report 8097909-7 (Version None)
Quarter: 2012Q1

REPORT INFORMATION
  Report Type: 
  Country: None (occurrence: None)
  Receive Date: 20120128
  Receipt Date: 20110715
  Transmission Date: 20120608
  Serious: No
  Sender: FDA-Public Use
  Company Number: US-ABBOTT-11P-163-0840674-00

PATIENT
  Sex: Female

DRUGS (3)
  1. HUMIRA [Suspect]
     Dosage: 80 MG 2ND LOADING DOSE, ONCE
     Route: 058
     Dates: start: 20110601, end: 20110601
  2. HUMIRA [Suspect]
     Route: 058
     Dates: start: 20110701
  3. HUMIRA [Suspect]
     Indication: CROHN'S DISEASE
     Dosage: 160 MG 1ST LOADING DOSE, ONCE
     Route: 058
     Dates: start: 20110601, end: 20110601

REACTIONS (3)
  - PAPULE [None]
  - FATIGUE [None]
  - PALPITATIONS [None]
